FAERS Safety Report 9284167 (Version 1)
Quarter: 2013Q2

REPORT INFORMATION
  Report Type: Spontaneous
  Country: SI (occurrence: SI)
  Receive Date: 20130510
  Receipt Date: 20130510
  Transmission Date: 20140414
  Serious: Yes (Death)
  Sender: FDA-Public Use
  Company Number: SI-ELI_LILLY_AND_COMPANY-SI201305002921

PATIENT
  Age: 87 Year
  Sex: Female

DRUGS (7)
  1. EFIENT [Suspect]
     Indication: PERCUTANEOUS CORONARY INTERVENTION
     Dosage: 60 MG, SINGLE
     Route: 048
     Dates: start: 20130503, end: 20130503
  2. ASPIRIN [Concomitant]
     Indication: ACUTE MYOCARDIAL INFARCTION
     Dosage: 250 MG, SINGLE
     Dates: start: 20130503, end: 20130503
  3. MORPHINE [Concomitant]
     Indication: ACUTE MYOCARDIAL INFARCTION
     Dosage: UNK, SINGLE
     Dates: start: 20130503, end: 20130503
  4. NITROGLYCERINE [Concomitant]
     Indication: ACUTE MYOCARDIAL INFARCTION
     Dosage: UNK, SINGLE
     Dates: start: 20130503, end: 20130503
  5. OXYGEN [Concomitant]
     Indication: ACUTE MYOCARDIAL INFARCTION
     Dosage: UNK
     Dates: start: 20130503, end: 20130503
  6. BIVALIRUDIN [Concomitant]
     Indication: ACUTE MYOCARDIAL INFARCTION
     Dosage: UNK
     Route: 042
     Dates: start: 20130503, end: 20130503
  7. ADRENALIN [Concomitant]
     Dosage: UNK
     Route: 042
     Dates: start: 20130503, end: 20130503

REACTIONS (1)
  - Cardiogenic shock [Fatal]
